FAERS Safety Report 4442601-0 (Version None)
Quarter: 2004Q3

REPORT INFORMATION
  Report Type: 
  Country: None (occurrence: None)
  Receive Date: 20040903
  Receipt Date: 20040720
  Transmission Date: 20050211
  Serious: Yes (Other)
  Sender: FDA-Public Use
  Company Number: 2004UW15126

PATIENT
  Age: 51 Year
  Sex: Male
  Weight: 90.7194 kg

DRUGS (11)
  1. CRESTOR [Suspect]
     Indication: BLOOD CHOLESTEROL INCREASED
     Dosage: 10 MG PO
     Route: 048
  2. HUMULIN 70/30 [Concomitant]
  3. HYDROCHLOROTHIAZIDE [Concomitant]
  4. NIASPAN [Concomitant]
  5. ZETIA [Concomitant]
  6. DIOVAN [Concomitant]
  7. NORVASC [Concomitant]
  8. LISINOPRIL [Concomitant]
  9. ZANTAC [Concomitant]
  10. AMARYL [Concomitant]
  11. FESO4 [Concomitant]

REACTIONS (1)
  - BLOOD GLUCOSE FLUCTUATION [None]
